FAERS Safety Report 10407349 (Version 1)
Quarter: 2014Q1

REPORT INFORMATION
  Report Type: Spontaneous
  Country: US (occurrence: None)
  Receive Date: 20140228
  Receipt Date: 20140228
  Transmission Date: 20141002
  Serious: No
  Sender: FDA-Public Use
  Company Number: 225309LEO

PATIENT
  Age: 70 Year
  Sex: Female

DRUGS (5)
  1. PICATO (INGENOL MEBUTATE) (0.015 %, GEL) [Suspect]
     Indication: ACTINIC KERATOSIS
     Dosage: 1 IN 1 D
     Route: 061
     Dates: start: 20131211, end: 20131221
  2. ASPIRIN(ACETYLSALICYLIC ACID) [Concomitant]
  3. LEVOCETIRIZINE (LEVOCETIRIZINE) [Concomitant]
  4. ALLEGRA(FEXOFENADINE HYDROCHLORIDE) [Concomitant]
  5. CONJOINTIN OTC(CARTIVIT) [Concomitant]

REACTIONS (7)
  - Application site vesicles [None]
  - Application site dermatitis [None]
  - Application site erythema [None]
  - Application site exfoliation [None]
  - Application site reaction [None]
  - Drug administered at inappropriate site [None]
  - Incorrect drug administration duration [None]
